FAERS Safety Report 9305283 (Version 2)
Quarter: 2013Q3

REPORT INFORMATION
  Report Type: Spontaneous
  Country: CN (occurrence: None)
  Receive Date: 20130520
  Receipt Date: 20130805
  Transmission Date: 20140515
  Serious: Yes (Hospitalization, Other)
  Sender: FDA-Public Use
  Company Number: 7211085

PATIENT
  Age: 65 Year
  Sex: Female

DRUGS (1)
  1. EUTHROX (LEVOTHROXINE SODIUM) (LEVOTHYROXINE SODIUM), 156525 [Suspect]
     Indication: THYROIDECTOMY
     Dosage: 1 TO 2 TABLETS,0.75TAB EVERY MORNING.
     Route: 048
     Dates: start: 201005, end: 201302

REACTIONS (7)
  - Pulmonary congestion [None]
  - Weight decreased [None]
  - Dizziness [None]
  - Fatigue [None]
  - Hypoaesthesia [None]
  - Enteritis [None]
  - Anxiety [None]
